FAERS Safety Report 4899198-0 (Version None)
Quarter: 2006Q1

REPORT INFORMATION
  Report Type: 
  Country: None (occurrence: None)
  Receive Date: 20060131
  Receipt Date: 20060125
  Transmission Date: 20060701
  Serious: Yes (Death, Other)
  Sender: FDA-Public Use
  Company Number: 200610042GDS

PATIENT
  Age: 73 Year
  Sex: Male

DRUGS (10)
  1. ACTIMAX (MOXIFLOXACIN) [Suspect]
     Indication: BACTERIAL INFECTION
     Dosage: 400 MG, TOTAL DAILY; ORAL
     Route: 048
  2. ACTIMAX (MOXIFLOXACIN) [Suspect]
     Indication: CONDITION AGGRAVATED
     Dosage: 400 MG, TOTAL DAILY; ORAL
     Route: 048
  3. ACTIMAX (MOXIFLOXACIN) [Suspect]
     Indication: NASOPHARYNGITIS
     Dosage: 400 MG, TOTAL DAILY; ORAL
     Route: 048
  4. SPIRIVA [Concomitant]
  5. ENALAPRIL COMP RATIOPHARM [Concomitant]
  6. ZYLORIC [Concomitant]
  7. PLAVIX [Concomitant]
  8. THEOPHYLLINE [Concomitant]
  9. PREDNISOLONE [Concomitant]
  10. SALBUTAMOL [Concomitant]

REACTIONS (4)
  - ARRHYTHMIA [None]
  - CIRCULATORY COLLAPSE [None]
  - CONFUSIONAL STATE [None]
  - SUDDEN CARDIAC DEATH [None]
